FAERS Safety Report 4389556-5 (Version None)
Quarter: 2004Q2

REPORT INFORMATION
  Report Type: 
  Country: None (occurrence: None)
  Receive Date: 20040629
  Receipt Date: 20040420
  Transmission Date: 20050107
  Serious: Yes (Hospitalization)
  Sender: FDA-Public Use
  Company Number: US-JNJFOC-20040401774

PATIENT
  Age: 45 Year
  Sex: Male

DRUGS (4)
  1. DURAGESIC [Suspect]
     Indication: PAIN
     Dosage: 75 UG/HR, 1 IN 72 HOUR, TRANSDERMAL
     Route: 062
     Dates: start: 20031101
  2. DURAGESIC [Suspect]
  3. WELLBUTRIN [Concomitant]
  4. ULTRAM [Concomitant]

REACTIONS (6)
  - APPLICATION SITE BURNING [None]
  - APPLICATION SITE ERYTHEMA [None]
  - DIZZINESS [None]
  - DRUG WITHDRAWAL SYNDROME [None]
  - HYPERHIDROSIS [None]
  - NERVOUSNESS [None]
